FAERS Safety Report 23673821 (Version 1)
Quarter: 2024Q1

REPORT INFORMATION
  Report Type: Spontaneous
  Country: GB (occurrence: None)
  Receive Date: 20240326
  Receipt Date: 20240326
  Transmission Date: 20240410
  Serious: Yes (Other)
  Sender: FDA-Public Use
  Company Number: 2024A069620

PATIENT
  Sex: Female

DRUGS (3)
  1. LYNPARZA [Suspect]
     Active Substance: OLAPARIB
     Indication: Ovarian cancer
     Route: 048
     Dates: start: 20170720, end: 20230810
  2. PACLITAXEL/CARBOPLATIN [Concomitant]
     Dates: end: 201405
  3. PACLITAXEL/CARBOPLATIN [Concomitant]
     Dates: start: 20170303, end: 20170623

REACTIONS (2)
  - Malignant neoplasm progression [Unknown]
  - Discontinued product administered [Unknown]

NARRATIVE: CASE EVENT DATE: 20230810
